FAERS Safety Report 5043812-6 (Version None)
Quarter: 2006Q2

REPORT INFORMATION
  Report Type: 
  Country: None (occurrence: None)
  Receive Date: 20060628
  Receipt Date: 20060615
  Transmission Date: 20061013
  Serious: Yes (Hospitalization, Other)
  Sender: FDA-Public Use
  Company Number: B0428493A

PATIENT
  Age: 14 Year
  Sex: Female

DRUGS (2)
  1. LAMICTAL [Suspect]
     Indication: DEPRESSION
  2. BUPROPION HYDROCHLORIDE [Concomitant]

REACTIONS (9)
  - ANGIONEUROTIC OEDEMA [None]
  - BODY TEMPERATURE INCREASED [None]
  - DERMATITIS EXFOLIATIVE [None]
  - HEADACHE [None]
  - HYPOTENSION [None]
  - TOXIC EPIDERMAL NECROLYSIS [None]
  - URTICARIA [None]
  - VISION BLURRED [None]
  - WHEEZING [None]
